FAERS Safety Report 5624798-X (Version None)
Quarter: 2008Q1

REPORT INFORMATION
  Report Type: 
  Country: None (occurrence: None)
  Receive Date: 20080213
  Receipt Date: 20080204
  Transmission Date: 20080703
  Serious: Yes (Life-Threatening)
  Sender: FDA-Public Use
  Company Number: DE-ROCHE-545516

PATIENT
  Age: 69 Year
  Sex: Male

DRUGS (27)
  1. TORSEMIDE [Suspect]
     Dosage: DOSAGE: 1-1-0 2-2-0.
     Route: 048
     Dates: start: 20050115, end: 20050131
  2. AUGMENTIN '125' [Suspect]
     Indication: INFECTION PROPHYLAXIS
     Dosage: DOSAGE: 1-1-1.
     Route: 048
     Dates: start: 20050114, end: 20050123
  3. HEPARIN [Suspect]
     Indication: THROMBOSIS PROPHYLAXIS
     Dosage: 25000 IE/24 HOUR.
     Route: 042
     Dates: start: 20050114, end: 20050131
  4. IRENAT [Suspect]
     Indication: HYPERTHYROIDISM
     Dosage: DOSAGE: 3X40.
     Route: 048
     Dates: start: 20050115, end: 20050128
  5. BELOC-ZOK [Suspect]
     Indication: HYPERTENSION
     Dosage: DOSAGE: 1-0-1
     Route: 048
     Dates: start: 20050115, end: 20050131
  6. ZOCOR [Suspect]
     Indication: HYPERLIPIDAEMIA
     Dosage: DOSAGE: 0-0-1.
     Route: 048
     Dates: start: 20050115, end: 20050131
  7. CARBIMAZOL [Suspect]
     Indication: HYPERTHYROIDISM
     Dosage: DOSAGE: 1-0-0.
     Route: 048
     Dates: start: 20050115, end: 20050131
  8. ASPIRIN [Suspect]
     Dosage: DOSAGE: 0-1-0.
     Route: 048
     Dates: start: 20050115, end: 20050131
  9. TAVOR [Suspect]
     Indication: ANXIETY DISORDER
     Dosage: DOSAGE: 1-0-0-1.
     Route: 048
     Dates: start: 20050116, end: 20050131
  10. DELIX PLUS [Suspect]
     Indication: HYPERTENSION
     Dosage: DOSAGE: 1-0-0
     Route: 048
     Dates: start: 20050116, end: 20050131
  11. VOLTAREN [Suspect]
     Indication: ARTHRITIS
     Route: 048
     Dates: start: 20050119, end: 20050120
  12. VOLTAREN [Suspect]
     Route: 048
     Dates: start: 20050127, end: 20050130
  13. COLCHICIN [Suspect]
     Indication: GOUT
     Route: 048
     Dates: start: 20050119, end: 20050122
  14. COLCHICIN [Suspect]
     Route: 048
     Dates: start: 20050127, end: 20050130
  15. EUNERPAN [Suspect]
     Indication: SLEEP DISORDER
     Dosage: DOSAGE: 0-0-0-1
     Route: 048
     Dates: start: 20050124, end: 20050131
  16. CIBADREX [Suspect]
     Indication: HYPERTENSION
     Route: 048
     Dates: start: 20050125, end: 20050131
  17. MARCUMAR [Concomitant]
     Dosage: DOSAGE: 1/2-1/4-0
     Route: 048
     Dates: start: 19950101, end: 20050114
  18. LASIX [Concomitant]
     Indication: OEDEMA
     Route: 048
     Dates: start: 20000101, end: 20050114
  19. SORTIS [Concomitant]
     Indication: HYPERLIPIDAEMIA
     Route: 048
     Dates: start: 20050114, end: 20050115
  20. MORPHINE [Concomitant]
     Indication: PAIN
     Dosage: DRUG: MORPHIUM. FORM: INJECTABLE SOLUTION.
     Route: 058
     Dates: start: 20050115, end: 20050115
  21. CORDAREX [Concomitant]
     Dosage: FORM: INJECTABLE SOLUTION.
     Route: 042
     Dates: start: 20050115, end: 20050115
  22. DELIX [Concomitant]
     Indication: HYPERTENSION
     Route: 048
     Dates: start: 20050115, end: 20050115
  23. BELOC [Concomitant]
     Dosage: FORM: INJECTABLE SOLUTION.
     Route: 042
     Dates: start: 20050115, end: 20050115
  24. LASIX [Concomitant]
     Dosage: DOSAGE: 2X40 MG, 1X20 MG. FORM: INJECTABLE SOLUTION.
     Route: 042
     Dates: start: 20050115, end: 20050117
  25. ALLOPURINOL [Concomitant]
     Indication: HYPERURICAEMIA
     Route: 048
     Dates: start: 20050131, end: 20050131
  26. FENISTIL [Concomitant]
     Indication: RASH PRURITIC
     Dosage: FORM: INJECTABLE SOLUTION.
     Route: 042
     Dates: start: 20050131, end: 20050131
  27. TAGAMET [Concomitant]
     Dosage: FORM; INJECTABLE SOLUTION.
     Route: 042
     Dates: start: 20050131, end: 20050131

REACTIONS (2)
  - STEVENS-JOHNSON SYNDROME [None]
  - TOXIC EPIDERMAL NECROLYSIS [None]
